FAERS Safety Report 16497818 (Version 1)
Quarter: 2019Q2

REPORT INFORMATION
  Report Type: Spontaneous
  Country: DE (occurrence: DE)
  Receive Date: 20190628
  Receipt Date: 20190628
  Transmission Date: 20190711
  Serious: Yes (Congenital Anomaly)
  Sender: FDA-Public Use
  Company Number: PHHY2019DE144446

PATIENT
  Sex: Male
  Weight: 3.87 kg

DRUGS (6)
  1. CETIRIZINE [Suspect]
     Active Substance: CETIRIZINE HYDROCHLORIDE
     Indication: FOETAL EXPOSURE DURING PREGNANCY
     Dosage: 10 MG, QD
     Route: 064
     Dates: start: 20110308, end: 20110428
  2. TD IMPFSTOFF MERIEUX [Concomitant]
     Indication: FOETAL EXPOSURE DURING PREGNANCY
     Dosage: UNK
     Route: 064
     Dates: start: 20110421, end: 20110421
  3. AMOXCLAV [Concomitant]
     Active Substance: AMOXICILLIN\CLAVULANIC ACID
     Indication: FOETAL EXPOSURE DURING PREGNANCY
     Dosage: 3 DF, QD
     Route: 064
     Dates: start: 20110420, end: 20110427
  4. FEMIBION [CALCIUM PHOSPHATE DIBASIC\FERROUS SUCCINATE\MAGNESIUM HYDROXIDE] [Concomitant]
     Active Substance: CALCIUM PHOSPHATE, DIBASIC, ANHYDROUS\FERROUS SUCCINATE\MAGNESIUM HYDROXIDE
     Indication: FOETAL EXPOSURE DURING PREGNANCY
     Dosage: UNK
     Route: 064
  5. OTRIVEN [Suspect]
     Active Substance: XYLOMETAZOLINE HYDROCHLORIDE
     Indication: FOETAL EXPOSURE DURING PREGNANCY
     Dosage: UNK
     Route: 064
     Dates: start: 20110308, end: 20111214
  6. INSULIN [Concomitant]
     Active Substance: INSULIN NOS
     Indication: FOETAL EXPOSURE DURING PREGNANCY
     Dosage: UNK
     Route: 064

REACTIONS (2)
  - Maternal exposure during pregnancy [Unknown]
  - Anal atresia [Recovered/Resolved with Sequelae]

NARRATIVE: CASE EVENT DATE: 20110308
